FAERS Safety Report 4850327-4 (Version None)
Quarter: 2005Q4

REPORT INFORMATION
  Report Type: 
  Country: None (occurrence: None)
  Receive Date: 20051123
  Receipt Date: 20050810
  Transmission Date: 20060501
  Serious: No
  Sender: FDA-Public Use
  Company Number: 216797

PATIENT
  Age: 61 Year
  Sex: Female

DRUGS (4)
  1. RAPTIVA [Suspect]
     Indication: PSORIASIS
     Dosage: 0.7 ML, 1/WEEK, SUBCUTANEOUS
     Route: 058
  2. ASPIRIN [Concomitant]
  3. VITAMINS (VITAMINS NOS) [Concomitant]
  4. CALCIUM (CALCIUM NOS) [Concomitant]

REACTIONS (1)
  - FATIGUE [None]
